FAERS Safety Report 20011663 (Version 3)
Quarter: 2021Q4

REPORT INFORMATION
  Report Type: Spontaneous
  Country: JP (occurrence: JP)
  Receive Date: 20211029
  Receipt Date: 20211208
  Transmission Date: 20220303
  Serious: Yes (Life-Threatening, Hospitalization, Other)
  Sender: FDA-Public Use
  Company Number: JP-PFIZER INC-202101377848

PATIENT
  Age: 70 Year
  Sex: Female
  Weight: 44.7 kg

DRUGS (11)
  1. INLYTA [Suspect]
     Active Substance: AXITINIB
     Indication: Renal cancer
     Dosage: 10 MG DAILY, DIVIDED INTO 2 DOSES AFTER BREAKFAST AND SUPPER
     Route: 048
     Dates: start: 20210420, end: 20210607
  2. INLYTA [Suspect]
     Active Substance: AXITINIB
     Dosage: 8MG  DAILY, DIVIDED INTO 2 DOSES AFTER BREAKFAST AND SUPPER
     Route: 048
     Dates: start: 20210608, end: 20210621
  3. INLYTA [Suspect]
     Active Substance: AXITINIB
     Dosage: 6 MG DAILY, DIVIDED INTO 2 DOSES AFTER BREAKFAST AND SUPPER
     Route: 048
     Dates: start: 20210622, end: 20210903
  4. LOXOPROFEN [Suspect]
     Active Substance: LOXOPROFEN
     Dosage: 60 MG FOR 1 DOSE, AS NEEDED BASIS FOR PAIN
     Dates: start: 20201222
  5. LEVOTHYROXINE SODIUM [Concomitant]
     Active Substance: LEVOTHYROXINE SODIUM
     Dosage: 25 UG, 1X/DAY AFTER BREAKFAST
     Dates: start: 20210607, end: 20210719
  6. LEVOTHYROXINE SODIUM [Concomitant]
     Active Substance: LEVOTHYROXINE SODIUM
     Dosage: 50 UG, 1X/DAY, AFTER BREAKFAST
     Dates: start: 20210720, end: 20210809
  7. LEVOTHYROXINE SODIUM [Concomitant]
     Active Substance: LEVOTHYROXINE SODIUM
     Dosage: 100 UG, 1X/DAY, AFTER BREAKFAST
     Dates: start: 20210810
  8. AMLODIPINE BESYLATE\AZILSARTAN [Concomitant]
     Active Substance: AMLODIPINE BESYLATE\AZILSARTAN
     Dosage: 1 TABLET, DAILY (AFTER BREAKFAST)
  9. TRICHLORMETHIAZIDE [Concomitant]
     Active Substance: TRICHLORMETHIAZIDE
     Dosage: 2 MG, 1X/DAY, AFTER BREAKFAST
  10. LIDOCAINE\TRIBENOSIDE [Concomitant]
     Active Substance: LIDOCAINE\TRIBENOSIDE
     Dosage: 2DF DAILY, DIVIDED INTO 2 DOSES IN THE MORNING AND THE NIGHT
  11. REBAMIPIDE [Concomitant]
     Active Substance: REBAMIPIDE
     Dosage: 100 MG FOR 1 DOSE, AS NEEDED BASIS FOR PAIN
     Dates: start: 20201222

REACTIONS (13)
  - Gastrointestinal perforation [Recovered/Resolved]
  - Hypothyroidism [Recovering/Resolving]
  - Ascites [Unknown]
  - Haematochezia [Unknown]
  - Diarrhoea [Recovering/Resolving]
  - Abdominal pain upper [Unknown]
  - Back pain [Unknown]
  - Vomiting [Unknown]
  - Abdominal pain lower [Unknown]
  - Impaired healing [Recovering/Resolving]
  - Malaise [Recovering/Resolving]
  - Decreased appetite [Recovering/Resolving]
  - Dysphonia [Recovering/Resolving]

NARRATIVE: CASE EVENT DATE: 20210601
